FAERS Safety Report 8029831-6 (Version None)
Quarter: 2011Q4

REPORT INFORMATION
  Report Type: 
  Country: None (occurrence: None)
  Receive Date: 20111130
  Receipt Date: 20110808
  Transmission Date: 20120403
  Serious: Yes (Other)
  Sender: FDA-Public Use
  Company Number: US200910005593

PATIENT
  Sex: Female
  Weight: 122.4 kg

DRUGS (9)
  1. CRESTOR [Concomitant]
  2. BYETTA [Suspect]
     Dates: start: 20070207, end: 20081201
  3. CALCIUM CARBONATE [Concomitant]
  4. PAXIL [Concomitant]
  5. EXENATIDE, DISPOSABLE DEVICE (EXENATIDE PEN ) PEN,DISPOSABLE [Concomitant]
  6. CARVEDILOL [Concomitant]
  7. CITALOPRAM HYDROBROMIDE [Suspect]
     Dates: start: 20080101
  8. METFORMIN HCL [Concomitant]
  9. NITROQUICK (GLYCERYL TRINITRATE) [Concomitant]

REACTIONS (1)
  - PANCREATITIS ACUTE [None]
